FAERS Safety Report 8396788-8 (Version None)
Quarter: 2012Q2

REPORT INFORMATION
  Report Type: 
  Country: None (occurrence: None)
  Receive Date: 20120530
  Receipt Date: 20120518
  Transmission Date: 20120825
  Serious: Yes (Other)
  Sender: FDA-Public Use
  Company Number: GB-BAYER-2012-049680

PATIENT
  Sex: Female

DRUGS (2)
  1. CLOTRIMAZOLE [Suspect]
     Dosage: UNK
     Dates: start: 20120516
  2. CLOTRIMAZOLE [Suspect]
     Dosage: UNK
     Dates: start: 20120516

REACTIONS (1)
  - HAEMORRHAGE [None]
